FAERS Safety Report 18452841 (Version 1)
Quarter: 2020Q4

REPORT INFORMATION
  Report Type: Report from Study
  Country: IT (occurrence: IT)
  Receive Date: 20201102
  Receipt Date: 20201102
  Transmission Date: 20210114
  Serious: Yes (Hospitalization)
  Sender: FDA-Public Use
  Company Number: IT-TEVA-2020-IT-1843319

PATIENT
  Age: 53 Year
  Sex: Female

DRUGS (14)
  1. OXALIPLATIN. [Suspect]
     Active Substance: OXALIPLATIN
     Indication: BILIARY NEOPLASM
     Dosage: 120MG
     Route: 042
     Dates: start: 20200121, end: 20200421
  2. ATENOLOL. [Concomitant]
     Active Substance: ATENOLOL
     Dosage: 50MG
  3. FLUOROURACIL. [Suspect]
     Active Substance: FLUOROURACIL
     Indication: BILIARY NEOPLASM
     Route: 042
     Dates: start: 20200121, end: 20200421
  4. CAPECITABINE. [Suspect]
     Active Substance: CAPECITABINE
     Indication: BILIARY NEOPLASM
     Dosage: 2000MG
     Route: 048
     Dates: start: 20200610, end: 20200623
  5. FOLINIC ACID [Suspect]
     Active Substance: LEUCOVORIN
     Indication: BILIARY NEOPLASM
     Dosage: 170MG
     Route: 042
     Dates: start: 20200121, end: 20200421
  6. DULOXETINE HYDROCHLORIDE. [Concomitant]
     Active Substance: DULOXETINE HYDROCHLORIDE
     Dosage: 60MG
  7. VALSARTAN. [Concomitant]
     Active Substance: VALSARTAN
     Dosage: 80MG
  8. ABSTRAL COMPRESSE SUBLINGUALI DA 100 MICROGRAMMI [Concomitant]
     Dosage: 1 DOSAGE FORMS
  9. GEMCITABINE. [Suspect]
     Active Substance: GEMCITABINE
     Indication: BILIARY NEOPLASM
     Dosage: 1650MG
     Route: 042
     Dates: start: 20200520, end: 20200715
  10. ARIXTRA 7.5 MG/0.6?ML SOLUTION FOR INJECTION, PRE-FILLED SYRINGE [Concomitant]
  11. SOLDESAM [Concomitant]
     Active Substance: DEXAMETHASONE
     Dosage: 30GTT
  12. TAVOR 2,5 MG COMPRESSE [Concomitant]
     Active Substance: LORAZEPAM
     Dosage: 0.5 DOSAGE FORMS
  13. MATRIFEN, 25 MICROGRAMMI/ORA CEROTTO TRANSDERMICO [Concomitant]
  14. PARIET [Concomitant]
     Active Substance: RABEPRAZOLE SODIUM

REACTIONS (1)
  - Peripheral sensory neuropathy [Recovering/Resolving]

NARRATIVE: CASE EVENT DATE: 20201007
